FAERS Safety Report 12343744 (Version 1)
Quarter: 2016Q2

REPORT INFORMATION
  Report Type: Spontaneous
  Country: US (occurrence: US)
  Receive Date: 20160507
  Receipt Date: 20160507
  Transmission Date: 20160815
  Serious: No
  Sender: FDA-Public Use
  Company Number: US-ASTRAZENECA-2016SE36719

PATIENT
  Age: 946 Month
  Sex: Male
  Weight: 79.4 kg

DRUGS (4)
  1. SYMBICORT [Suspect]
     Active Substance: BUDESONIDE\FORMOTEROL FUMARATE DIHYDRATE
     Indication: EMPHYSEMA
     Dosage: 80/4.5, 2 PUFFS, TWICE DAILY
     Route: 055
     Dates: start: 20160317, end: 20160321
  2. SYMBICORT [Suspect]
     Active Substance: BUDESONIDE\FORMOTEROL FUMARATE DIHYDRATE
     Indication: PNEUMONITIS
     Dosage: 80/4.5, 2 PUFFS, TWICE DAILY
     Route: 055
     Dates: start: 20160317, end: 20160321
  3. SYMBICORT [Suspect]
     Active Substance: BUDESONIDE\FORMOTEROL FUMARATE DIHYDRATE
     Indication: CHRONIC OBSTRUCTIVE PULMONARY DISEASE
     Dosage: 80/4.5, 2 PUFFS, TWICE DAILY
     Route: 055
     Dates: start: 20160317, end: 20160321
  4. ALNUTEROL [Concomitant]
     Indication: PROPHYLAXIS

REACTIONS (5)
  - Nasal congestion [Recovered/Resolved]
  - Cough [Recovering/Resolving]
  - Product use issue [Unknown]
  - Fatigue [Recovered/Resolved]
  - Wheezing [Recovering/Resolving]

NARRATIVE: CASE EVENT DATE: 201603
